FAERS Safety Report 17069790 (Version 4)
Quarter: 2022Q2

REPORT INFORMATION
  Report Type: Report from Study
  Country: FR (occurrence: FR)
  Receive Date: 20191125
  Receipt Date: 20220517
  Transmission Date: 20220721
  Serious: Yes (Hospitalization)
  Sender: FDA-Public Use
  Company Number: FR-ABBVIE-19K-056-2964348-00

PATIENT
  Age: 82 Year
  Sex: Male
  Weight: 78 kg

DRUGS (19)
  1. VENETOCLAX [Suspect]
     Active Substance: VENETOCLAX
     Indication: Chronic lymphocytic leukaemia
     Route: 048
     Dates: start: 20181024, end: 20181030
  2. VENETOCLAX [Suspect]
     Active Substance: VENETOCLAX
     Route: 048
     Dates: start: 20181031, end: 20181106
  3. VENETOCLAX [Suspect]
     Active Substance: VENETOCLAX
     Route: 048
     Dates: start: 20181107, end: 20181113
  4. VENETOCLAX [Suspect]
     Active Substance: VENETOCLAX
     Route: 048
     Dates: start: 20181114, end: 20181120
  5. VENETOCLAX [Suspect]
     Active Substance: VENETOCLAX
     Route: 048
     Dates: start: 20181121, end: 20190820
  6. VENETOCLAX [Suspect]
     Active Substance: VENETOCLAX
     Route: 048
     Dates: start: 20190821, end: 20220503
  7. BACTRIM [Concomitant]
     Active Substance: SULFAMETHOXAZOLE\TRIMETHOPRIM
     Indication: Antifungal prophylaxis
     Dates: start: 20181123
  8. VALACYCLOVIR HYDROCHLORIDE [Concomitant]
     Active Substance: VALACYCLOVIR HYDROCHLORIDE
     Indication: Antiviral prophylaxis
     Dates: start: 20170314
  9. LANSOPRAZOLE [Concomitant]
     Active Substance: LANSOPRAZOLE
     Indication: Pain prophylaxis
     Dates: start: 20170314
  10. KARDEGIC [Concomitant]
     Active Substance: ASPIRIN DL-LYSINE
     Indication: Coronary artery disease
  11. NEBIVOLOL [Concomitant]
     Active Substance: NEBIVOLOL
     Indication: Coronary artery disease
  12. FUROSEMIDE [Concomitant]
     Active Substance: FUROSEMIDE
     Indication: Ischaemic cardiomyopathy
  13. FASTURTEC [Concomitant]
     Active Substance: RASBURICASE
     Indication: Prophylaxis
     Dates: start: 20181023, end: 20181025
  14. FASTURTEC [Concomitant]
     Active Substance: RASBURICASE
     Dates: start: 20181107, end: 20181108
  15. FASTURTEC [Concomitant]
     Active Substance: RASBURICASE
     Dates: start: 20181114, end: 20181115
  16. FASTURTEC [Concomitant]
     Active Substance: RASBURICASE
     Dates: start: 20181121, end: 20181122
  17. ALBUTEROL [Concomitant]
     Active Substance: ALBUTEROL
     Indication: Cough
     Dates: start: 20181122, end: 20181122
  18. ASPIRIN\CLOPIDOGREL [Concomitant]
     Active Substance: ASPIRIN\CLOPIDOGREL
     Indication: Angioplasty
     Dates: start: 20200701
  19. CORDARONE [Concomitant]
     Active Substance: AMIODARONE HYDROCHLORIDE
     Indication: Coronary artery disease
     Dates: start: 20200701

REACTIONS (14)
  - Campylobacter gastroenteritis [Recovered/Resolved]
  - COVID-19 pneumonia [Not Recovered/Not Resolved]
  - Diarrhoea [Recovered/Resolved]
  - Hypokalaemia [Recovered/Resolved]
  - Hypokalaemia [Recovered/Resolved]
  - Diarrhoea [Recovered/Resolved]
  - Cough [Recovered/Resolved]
  - Neutropenia [Recovered/Resolved]
  - Neutropenia [Recovered/Resolved]
  - Hypocalcaemia [Unknown]
  - Hyperuricaemia [Recovered/Resolved]
  - Neutropenia [Recovered/Resolved]
  - Neutropenia [Recovered/Resolved]
  - Neutropenia [Recovered/Resolved]

NARRATIVE: CASE EVENT DATE: 20181106
